FAERS Safety Report 20676913 (Version 3)
Quarter: 2022Q2

REPORT INFORMATION
  Report Type: Report from Study
  Country: IL (occurrence: IL)
  Receive Date: 20220406
  Receipt Date: 20220419
  Transmission Date: 20220720
  Serious: Yes (Hospitalization)
  Sender: FDA-Public Use
  Company Number: IL-ABBVIE-22K-082-4345147-00

PATIENT
  Age: 84 Year
  Sex: Male

DRUGS (4)
  1. CARBIDOPA\LEVODOPA [Suspect]
     Active Substance: CARBIDOPA\LEVODOPA
     Indication: Parkinson^s disease
     Dosage: MD 11.0(ML), CD 2.8(ML/H),  ED 1.5(ML)?GOES TO 24-HOUR TREATMENT
     Route: 050
     Dates: start: 20220126, end: 202201
  2. CARBIDOPA\LEVODOPA [Suspect]
     Active Substance: CARBIDOPA\LEVODOPA
     Dosage: MD 6.0(ML),CD 2.8(ML/H),ED1.5(ML),NIGHT CONT.DOSE(ML/H)2.0?SWITCHED TO 24HOUR TREATMENT
     Route: 050
     Dates: start: 2022, end: 2022
  3. CARBIDOPA\LEVODOPA [Suspect]
     Active Substance: CARBIDOPA\LEVODOPA
     Dosage: CONTINUOUS DOSAGE (ML/H)  3.0
     Route: 050
     Dates: start: 2022, end: 2022
  4. CARBIDOPA\LEVODOPA [Suspect]
     Active Substance: CARBIDOPA\LEVODOPA
     Dosage: CONTINUOUS DOSAGE (ML/H) 2.8
     Route: 050
     Dates: start: 2022

REACTIONS (4)
  - Femoral neck fracture [Recovering/Resolving]
  - Aggression [Recovered/Resolved]
  - Delirium [Recovered/Resolved]
  - Confusional state [Recovered/Resolved]

NARRATIVE: CASE EVENT DATE: 20220401
